FAERS Safety Report 6769705-1 (Version None)
Quarter: 2010Q2

REPORT INFORMATION
  Report Type: 
  Country: None (occurrence: None)
  Receive Date: 20100615
  Receipt Date: 20100603
  Transmission Date: 20101027
  Serious: Yes (Other)
  Sender: FDA-Public Use
  Company Number: ES-ROCHE-701720

PATIENT
  Sex: Female
  Weight: 23.6 kg

DRUGS (2)
  1. ROACTEMRA [Suspect]
     Dosage: FORM: INFUSION
     Route: 065
     Dates: start: 20090312, end: 20090928
  2. METHOTREXATE [Concomitant]
     Route: 048

REACTIONS (2)
  - HYPOACUSIS [None]
  - OTITIS MEDIA [None]
